FAERS Safety Report 10901223 (Version 5)
Quarter: 2015Q3

REPORT INFORMATION
  Report Type: Spontaneous
  Country: US (occurrence: None)
  Receive Date: 20150303
  Receipt Date: 20150723
  Transmission Date: 20151125
  Serious: Yes (Other)
  Sender: FDA-Public Use
  Company Number: ADR-2015-00405

PATIENT
  Age: 5 Year
  Sex: Male

DRUGS (1)
  1. LIORESAL [Suspect]
     Active Substance: BACLOFEN
     Indication: MUSCLE SPASTICITY

REACTIONS (9)
  - Implant site scar [None]
  - Device malfunction [None]
  - Medical device site fibrosis [None]
  - Device kink [None]
  - Device occlusion [None]
  - Muscle spasticity [None]
  - Device issue [None]
  - Condition aggravated [None]
  - Pseudomeningocele [None]
